FAERS Safety Report 7590001-7 (Version None)
Quarter: 2011Q3

REPORT INFORMATION
  Report Type: 
  Country: None (occurrence: None)
  Receive Date: 20110705
  Receipt Date: 20110627
  Transmission Date: 20111222
  Serious: Yes (Death)
  Sender: FDA-Public Use
  Company Number: A0930854A

PATIENT
  Sex: Female

DRUGS (3)
  1. WELLBUTRIN [Suspect]
     Indication: DEPRESSIVE SYMPTOM
     Dosage: 150MG PER DAY
     Route: 065
  2. BUPROPION HYDROCHLORIDE [Suspect]
     Indication: DEPRESSIVE SYMPTOM
     Dosage: 150MG PER DAY
     Route: 065
  3. AMBIEN [Concomitant]

REACTIONS (4)
  - DEPRESSIVE SYMPTOM [None]
  - SUICIDAL IDEATION [None]
  - COMPLETED SUICIDE [None]
  - INSOMNIA [None]
